FAERS Safety Report 15036102 (Version 2)
Quarter: 2018Q3

REPORT INFORMATION
  Report Type: Spontaneous
  Country: HR (occurrence: HR)
  Receive Date: 20180620
  Receipt Date: 20180706
  Transmission Date: 20181010
  Serious: Yes (Other)
  Sender: FDA-Public Use
  Company Number: HR-TEVA-2018-HR-909428

PATIENT
  Age: 51 Year
  Sex: Male

DRUGS (5)
  1. ATORVASTATIN [Suspect]
     Active Substance: ATORVASTATIN
     Indication: DYSLIPIDAEMIA
     Route: 065
  2. ACETYLSALICYLIC?ACID [Concomitant]
     Indication: DYSLIPIDAEMIA
     Route: 065
  3. ROSUVASTATIN. [Suspect]
     Active Substance: ROSUVASTATIN
     Indication: DYSLIPIDAEMIA
     Route: 065
  4. NEBIVOLOL. [Concomitant]
     Active Substance: NEBIVOLOL
     Indication: DYSLIPIDAEMIA
     Route: 065
  5. EZETIMIBE. [Interacting]
     Active Substance: EZETIMIBE
     Indication: DYSLIPIDAEMIA
     Route: 065

REACTIONS (3)
  - Drug ineffective [Unknown]
  - Hepatotoxicity [Unknown]
  - Drug interaction [Unknown]
